FAERS Safety Report 18339493 (Version 2)
Quarter: 2020Q4

REPORT INFORMATION
  Report Type: Spontaneous
  Country: BR (occurrence: BR)
  Receive Date: 20201002
  Receipt Date: 20201015
  Transmission Date: 20210113
  Serious: Yes (Disabling)
  Sender: FDA-Public Use
  Company Number: BR-VERITY PHARMACEUTICALS, INC.-2020VTY00498

PATIENT
  Age: 63 Year
  Sex: Male

DRUGS (1)
  1. TRIPTORELIN PAMOATE [Suspect]
     Active Substance: TRIPTORELIN PAMOATE
     Indication: NEOPLASM PROSTATE
     Dosage: 3.75 MG, 4X/YEAR (EVERY 3 MONTHS)
     Route: 030
     Dates: start: 20191223

REACTIONS (5)
  - Condition aggravated [Recovered/Resolved]
  - Chills [Not Recovered/Not Resolved]
  - Presyncope [Not Recovered/Not Resolved]
  - Hyperhidrosis [Not Recovered/Not Resolved]
  - Off label use [Not Recovered/Not Resolved]

NARRATIVE: CASE EVENT DATE: 20191223
